FAERS Safety Report 19000176 (Version 4)
Quarter: 2021Q1

REPORT INFORMATION
  Report Type: Spontaneous
  Country: US (occurrence: US)
  Receive Date: 20210312
  Receipt Date: 20210326
  Transmission Date: 20210420
  Serious: No
  Sender: FDA-Public Use
  Company Number: US-BIOGEN-2021BI00989308

PATIENT
  Age: 31 Year
  Sex: Female

DRUGS (2)
  1. PLEGRIDY [Suspect]
     Active Substance: PEGINTERFERON BETA-1A
     Indication: MULTIPLE SCLEROSIS
     Route: 065
     Dates: start: 20210309
  2. PLEGRIDY [Suspect]
     Active Substance: PEGINTERFERON BETA-1A
     Route: 065
     Dates: start: 20210316

REACTIONS (3)
  - Injury associated with device [Unknown]
  - Injection site erythema [Not Recovered/Not Resolved]
  - Drug delivery system malfunction [Unknown]

NARRATIVE: CASE EVENT DATE: 20210309
